FAERS Safety Report 8623448-8 (Version None)
Quarter: 2012Q3

REPORT INFORMATION
  Report Type: 
  Country: None (occurrence: None)
  Receive Date: 20120827
  Receipt Date: 20120814
  Transmission Date: 20120928
  Serious: No
  Sender: FDA-Public Use
  Company Number: US-009507513-1208USA007859

PATIENT

DRUGS (3)
  1. SPIRIVA [Concomitant]
  2. ASMANEX TWISTHALER [Suspect]
     Indication: CHRONIC OBSTRUCTIVE PULMONARY DISEASE
     Dosage: UNK, STARTED A FEW YEARS AGO
     Route: 055
  3. MUCINEX [Concomitant]

REACTIONS (6)
  - ASTHENIA [None]
  - DYSPNOEA [None]
  - UNDERDOSE [None]
  - DEVICE MALFUNCTION [None]
  - RESPIRATORY TRACT IRRITATION [None]
  - PHARYNGEAL OEDEMA [None]
